FAERS Safety Report 8129114-X (Version None)
Quarter: 2012Q1

REPORT INFORMATION
  Report Type: 
  Country: None (occurrence: None)
  Receive Date: 20120210
  Receipt Date: 20120209
  Transmission Date: 20120608
  Serious: Yes (Hospitalization)
  Sender: FDA-Public Use
  Company Number: SE-PFIZER INC-2006056083

PATIENT
  Age: 77 Year
  Sex: Female

DRUGS (9)
  1. KALIUM RETARD [Concomitant]
     Indication: ILL-DEFINED DISORDER
     Route: 048
     Dates: start: 19980101
  2. PLENDIL [Concomitant]
     Indication: ILL-DEFINED DISORDER
     Dosage: DAILY
     Route: 048
     Dates: start: 19910101
  3. HYDROCORTISONE [Concomitant]
     Route: 048
  4. LEVOTHYROXINE SODIUM [Concomitant]
     Indication: ILL-DEFINED DISORDER
     Dosage: DAILY
     Route: 048
  5. AMILORIDE HYDROCHLORIDE [Concomitant]
     Indication: ILL-DEFINED DISORDER
     Dosage: DAILY
     Route: 048
     Dates: start: 19990101
  6. INSULIN [Concomitant]
     Indication: ILL-DEFINED DISORDER
     Route: 058
     Dates: end: 20060515
  7. SOMATROPIN [Suspect]
     Indication: HYPOPITUITARISM
     Dosage: 0.4 MG, 1X/DAY
     Dates: start: 19971001
  8. LASIX [Concomitant]
     Indication: HYPERTENSION
     Route: 048
  9. KALCIPOS [Concomitant]
     Route: 048
     Dates: start: 20020101

REACTIONS (1)
  - SUPRAVENTRICULAR TACHYCARDIA [None]
